FAERS Safety Report 6016181-2 (Version None)
Quarter: 2008Q4

REPORT INFORMATION
  Report Type: 
  Country: None (occurrence: None)
  Receive Date: 20081218
  Receipt Date: 20081208
  Transmission Date: 20090506
  Serious: Yes (Other)
  Sender: FDA-Public Use
  Company Number: 2008S1000544

PATIENT
  Age: 17 Year
  Sex: Male
  Weight: 53 kg

DRUGS (7)
  1. SORIATANE [Suspect]
     Indication: PSORIASIS
     Dosage: 25 MG;QD;PO, 25 MG;QD;PO, 50 MG;QD;PO, 25 MG;QD;PO, 50 MG;QD;PO
     Route: 048
     Dates: end: 20080101
  2. SORIATANE [Suspect]
     Indication: PSORIASIS
     Dosage: 25 MG;QD;PO, 25 MG;QD;PO, 50 MG;QD;PO, 25 MG;QD;PO, 50 MG;QD;PO
     Route: 048
     Dates: start: 20080701, end: 20081001
  3. SORIATANE [Suspect]
     Indication: PSORIASIS
     Dosage: 25 MG;QD;PO, 25 MG;QD;PO, 50 MG;QD;PO, 25 MG;QD;PO, 50 MG;QD;PO
     Route: 048
     Dates: start: 20081001, end: 20081001
  4. SORIATANE [Suspect]
     Indication: PSORIASIS
     Dosage: 25 MG;QD;PO, 25 MG;QD;PO, 50 MG;QD;PO, 25 MG;QD;PO, 50 MG;QD;PO
     Route: 048
     Dates: start: 20080101, end: 20081111
  5. SORIATANE [Suspect]
     Indication: PSORIASIS
     Dosage: 25 MG;QD;PO, 25 MG;QD;PO, 50 MG;QD;PO, 25 MG;QD;PO, 50 MG;QD;PO
     Route: 048
     Dates: start: 20081112, end: 20081201
  6. TACLONEX [Suspect]
     Indication: PSORIASIS
     Dosage: ;QD;
     Dates: start: 20080701
  7. DOVONEX [Concomitant]

REACTIONS (2)
  - MULTIPLE DRUG OVERDOSE [None]
  - SUICIDE ATTEMPT [None]
